FAERS Safety Report 5190591-8 (Version None)
Quarter: 2006Q4

REPORT INFORMATION
  Report Type: 
  Country: None (occurrence: None)
  Receive Date: 20061222
  Receipt Date: 20060817
  Transmission Date: 20070319
  Serious: Yes (Disabling)
  Sender: FDA-Public Use
  Company Number: US-BRISTOL-MYERS SQUIBB COMPANY-13481098

PATIENT
  Sex: Male

DRUGS (11)
  1. ORENCIA [Suspect]
     Indication: RHEUMATOID ARTHRITIS
     Route: 042
     Dates: start: 20060501
  2. HYDROCHLOROTHIAZIDE [Concomitant]
  3. MTX [Concomitant]
  4. ZANTAC [Concomitant]
  5. TYLENOL W/ CODEINE NO. 3 [Concomitant]
  6. BONIVA [Concomitant]
  7. AMLODIPINE [Concomitant]
  8. ZYRTEC [Concomitant]
  9. ZOLOFT [Concomitant]
  10. POSTURE-D [Concomitant]
  11. FOLIC ACID [Concomitant]

REACTIONS (2)
  - LIP SWELLING [None]
  - PHARYNGEAL OEDEMA [None]
